FAERS Safety Report 5937430-2 (Version None)
Quarter: 2008Q4

REPORT INFORMATION
  Report Type: 
  Country: None (occurrence: None)
  Receive Date: 20081031
  Receipt Date: 20081028
  Transmission Date: 20090506
  Serious: Yes (Hospitalization)
  Sender: FDA-Public Use
  Company Number: A0736059A

PATIENT
  Age: 5 Year
  Sex: Male

DRUGS (1)
  1. ALTABAX [Suspect]
     Indication: EYE DISORDER
     Route: 065
     Dates: start: 20080530, end: 20080602

REACTIONS (3)
  - CONDITION AGGRAVATED [None]
  - DRUG INEFFECTIVE [None]
  - EYE DISORDER [None]
